FAERS Safety Report 13737125 (Version 1)
Quarter: 2017Q3

REPORT INFORMATION
  Report Type: Spontaneous
  Country: FR (occurrence: FR)
  Receive Date: 20170710
  Receipt Date: 20170710
  Transmission Date: 20171127
  Serious: Yes (Other)
  Sender: FDA-Public Use
  Company Number: FR-TEIKOKU PHARMA USA-TPU2017-00389

PATIENT
  Age: 88 Year
  Sex: Female

DRUGS (4)
  1. VERSATIS [Suspect]
     Active Substance: LIDOCAINE
     Indication: MUSCULOSKELETAL PAIN
     Route: 061
     Dates: start: 20170523, end: 20170529
  2. OMEPRAZOLE. [Concomitant]
     Active Substance: OMEPRAZOLE
     Dates: start: 20170523
  3. DAFALGAN [Concomitant]
     Active Substance: ACETAMINOPHEN
     Dates: start: 20170523
  4. APRANAX [Concomitant]
     Active Substance: NAPROXEN
     Dates: start: 20170523

REACTIONS (4)
  - Discomfort [Recovering/Resolving]
  - Insomnia [Recovering/Resolving]
  - Bronchospasm [Recovered/Resolved]
  - Asthenia [Recovering/Resolving]

NARRATIVE: CASE EVENT DATE: 20170529
